FAERS Safety Report 8825376 (Version 2)
Quarter: 2015Q3

REPORT INFORMATION
  Report Type: Report from Study
  Country: US (occurrence: US)
  Receive Date: 20121004
  Receipt Date: 20150812
  Transmission Date: 20151125
  Serious: Yes (Death)
  Sender: FDA-Public Use
  Company Number: US-ROCHE-1131427

PATIENT
  Sex: Male

DRUGS (16)
  1. BENADRYL [Concomitant]
     Active Substance: DIPHENHYDRAMINE HYDROCHLORIDE
     Dosage: FOR 3 WEEK
     Route: 048
  2. PREDNISONE. [Concomitant]
     Active Substance: PREDNISONE
     Route: 048
  3. RITUXAN [Suspect]
     Active Substance: RITUXIMAB
     Indication: B-CELL LYMPHOMA
     Route: 042
     Dates: start: 20000829
  4. BENADRYL [Concomitant]
     Active Substance: DIPHENHYDRAMINE HYDROCHLORIDE
     Route: 048
  5. TYLENOL [Concomitant]
     Active Substance: ACETAMINOPHEN
     Dosage: FOR 3 WEEKS
     Route: 048
  6. THORAZINE [Concomitant]
     Active Substance: CHLORPROMAZINE
     Indication: HICCUPS
     Route: 048
  7. REGLAN [Concomitant]
     Active Substance: METOCLOPRAMIDE HYDROCHLORIDE
     Route: 048
  8. PEPCID [Concomitant]
     Active Substance: FAMOTIDINE
     Route: 048
  9. NPH INSULIN [Concomitant]
     Active Substance: INSULIN BEEF
     Dosage: Q PM
     Route: 058
  10. REGULAR INSULIN [Concomitant]
     Active Substance: INSULIN NOS
     Route: 058
  11. CYCLOPHOSPHAMIDE. [Concomitant]
     Active Substance: CYCLOPHOSPHAMIDE
  12. HYDROXYDAUNORUBICIN [Concomitant]
     Active Substance: DOXORUBICIN
  13. ATROVENT [Concomitant]
     Active Substance: IPRATROPIUM BROMIDE
     Dosage: TWO PUFFS EACH NOSTRIL
     Route: 065
  14. ONCOVIN [Concomitant]
     Active Substance: VINCRISTINE SULFATE
  15. REGULAR INSULIN [Concomitant]
     Active Substance: INSULIN NOS
     Route: 058
  16. NPH INSULIN [Concomitant]
     Active Substance: INSULIN BEEF
     Dosage: Q AM
     Route: 058

REACTIONS (11)
  - Fatigue [Unknown]
  - Mucosal dryness [Unknown]
  - Death [Fatal]
  - Micturition urgency [Unknown]
  - Decreased appetite [Unknown]
  - Sinus disorder [Unknown]
  - Weight decreased [Unknown]
  - Constipation [Unknown]
  - Asthenia [Unknown]
  - Polyuria [Unknown]
  - Headache [Unknown]
